FAERS Safety Report 8390487 (Version 3)
Quarter: 2012Q4

REPORT INFORMATION
  Report Type: 
  Country: JP (occurrence: JP)
  Receive Date: 20120205
  Receipt Date: 20120907
  Transmission Date: 20130627
  Serious: Yes (Death, Hospitalization, Other)
  Sender: FDA-Public Use
  Company Number: PHHY2012JP008437

PATIENT
  Age: 54 Year
  Sex: Female

DRUGS (3)
  1. OXALIPLATIN [Suspect]
     Indication: COLON CANCER METASTATIC
     Dosage: 130 mg/m2, on day 1
     Dates: start: 201004
  2. XELODA [Suspect]
     Indication: COLON CANCER METASTATIC
     Dosage: 2000 mg/m2, TIW
     Dates: start: 201004
  3. LANSOPRAZOLE [Concomitant]
     Indication: GASTRITIS
     Dosage: 15 mg, UNK
     Route: 048

REACTIONS (24)
  - Death [Fatal]
  - Splenomegaly [Unknown]
  - Heart rate decreased [Unknown]
  - Ovarian enlargement [Unknown]
  - General physical health deterioration [Unknown]
  - Peritoneal disorder [Unknown]
  - Ascites [Unknown]
  - Haemolytic anaemia [Unknown]
  - Bone marrow failure [Unknown]
  - Normochromic normocytic anaemia [Unknown]
  - Thrombocytopenia [Unknown]
  - Haematuria [Unknown]
  - Feeling abnormal [Unknown]
  - Vomiting [Unknown]
  - Nausea [Unknown]
  - Fatigue [Unknown]
  - Renal failure acute [Unknown]
  - Oedema peripheral [Unknown]
  - Renal impairment [Unknown]
  - Azotaemia [Unknown]
  - Urine output decreased [Unknown]
  - Malaise [Unknown]
  - Dizziness [Unknown]
  - Back pain [Unknown]
